FAERS Safety Report 4649116-5 (Version None)
Quarter: 2005Q2

REPORT INFORMATION
  Report Type: 
  Country: None (occurrence: None)
  Receive Date: 20050429
  Receipt Date: 20050301
  Transmission Date: 20051028
  Serious: Yes (Hospitalization)
  Sender: FDA-Public Use
  Company Number: JP-GLAXOSMITHKLINE-B0373323A

PATIENT
  Age: 76 Year
  Sex: Male
  Weight: 47 kg

DRUGS (19)
  1. PAXIL [Suspect]
     Indication: DEPRESSION
     Route: 048
     Dates: start: 20050210, end: 20050307
  2. ALPRAZOLAM [Concomitant]
     Indication: DEPRESSION
     Dosage: 1.2MG PER DAY
     Route: 048
     Dates: start: 20050210
  3. MYSLEE [Concomitant]
     Indication: DEPRESSION
     Dosage: 5MG PER DAY
     Route: 048
     Dates: start: 20050210
  4. ITOROL [Concomitant]
     Dosage: 40MG PER DAY
     Route: 048
     Dates: start: 20050223
  5. HERBESSER [Concomitant]
     Dosage: 90MG PER DAY
     Route: 048
     Dates: start: 20050223
  6. VEEN-F [Concomitant]
     Indication: INTESTINAL POLYPECTOMY
     Dosage: 500ML PER DAY
     Dates: start: 20050223, end: 20050223
  7. ADONA (AC-17) [Concomitant]
     Indication: INTESTINAL POLYPECTOMY
     Dosage: 100MG PER DAY
     Dates: start: 20050223, end: 20050223
  8. TRANSAMIN [Concomitant]
     Indication: INTESTINAL POLYPECTOMY
     Dosage: 2G PER DAY
     Dates: start: 20050223, end: 20050223
  9. GLUCAGON [Concomitant]
     Indication: INTESTINAL POLYPECTOMY
     Dosage: 1MG PER DAY
     Dates: start: 20050223, end: 20050223
  10. BUFFERIN [Concomitant]
     Dosage: 81MG PER DAY
     Route: 048
     Dates: start: 20050302
  11. MAGMITT [Concomitant]
     Dosage: 900MG PER DAY
     Route: 048
  12. ALEVIATIN [Concomitant]
     Dosage: 300MG PER DAY
     Route: 048
     Dates: start: 20050302, end: 20050307
  13. PHENYTOIN [Concomitant]
     Dosage: 225MG PER DAY
     Route: 048
     Dates: start: 20050308, end: 20050311
  14. CERCINE [Concomitant]
     Dosage: 10MG PER DAY
     Route: 048
     Dates: start: 20050302, end: 20050307
  15. DEPAKENE [Concomitant]
     Route: 048
     Dates: start: 20050302, end: 20050315
  16. CYANOCOBALAMIN [Concomitant]
     Dosage: 1500MCG PER DAY
     Route: 048
     Dates: start: 20050407
  17. PENTCILLIN [Concomitant]
     Dosage: 2G PER DAY
     Route: 042
     Dates: start: 20050308, end: 20050310
  18. BROACT [Concomitant]
     Dosage: 2G PER DAY
     Route: 042
     Dates: start: 20050310, end: 20050315
  19. NEO-MINOPHAGEN C [Concomitant]
     Dosage: 40ML PER DAY
     Route: 042
     Dates: start: 20050311, end: 20050314

REACTIONS (15)
  - ATROPHY [None]
  - CEREBRAL ATROPHY [None]
  - CHEST PAIN [None]
  - DEPRESSED LEVEL OF CONSCIOUSNESS [None]
  - DISORIENTATION [None]
  - DYSPNOEA [None]
  - ENCEPHALOPATHY [None]
  - EPILEPSY [None]
  - EYE MOVEMENT DISORDER [None]
  - FATIGUE [None]
  - HALLUCINATION, VISUAL [None]
  - SLEEP DISORDER [None]
  - SPEECH DISORDER [None]
  - TREMOR [None]
  - VOMITING [None]
